FAERS Safety Report 7493216-1 (Version None)
Quarter: 2011Q2

REPORT INFORMATION
  Report Type: 
  Country: None (occurrence: None)
  Receive Date: 20110520
  Receipt Date: 20110516
  Transmission Date: 20111010
  Serious: Yes (Hospitalization, Other)
  Sender: FDA-Public Use
  Company Number: US-PFIZER INC-2010182483

PATIENT
  Sex: Female

DRUGS (11)
  1. FLUOXETINE [Concomitant]
  2. BUTALBITAL AND CAFFEINE AND PARACETAMOL [Concomitant]
     Indication: PAIN
     Dosage: UNK
     Dates: start: 20070101, end: 20090101
  3. ATROPINE [Concomitant]
     Indication: EYE INFLAMMATION
     Dosage: UNK
     Dates: start: 20070101
  4. AMBIEN [Concomitant]
     Indication: INSOMNIA
     Dosage: UNK
     Dates: start: 20050101
  5. IBUPROFEN [Concomitant]
     Indication: ARTHRITIS
  6. IBUPROFEN [Concomitant]
     Indication: PAIN
     Dosage: UNK
     Dates: start: 20060101, end: 20090101
  7. PREDNISOLONE [Concomitant]
     Indication: EYE INFLAMMATION
     Dosage: UNK
     Dates: start: 20050101
  8. TRAZODONE [Concomitant]
     Indication: DEPRESSION
     Dosage: UNK
     Dates: start: 20060101
  9. TRAZODONE [Concomitant]
  10. CHANTIX [Suspect]
     Indication: SMOKING CESSATION THERAPY
     Dosage: STARTING AND CONTINUING PACK
     Dates: start: 20071013, end: 20080108
  11. FLUOXETINE [Concomitant]
     Indication: DEPRESSION
     Dosage: UNK
     Dates: start: 20050101

REACTIONS (9)
  - INSOMNIA [None]
  - HEADACHE [None]
  - ANXIETY [None]
  - PANIC ATTACK [None]
  - AGGRESSION [None]
  - NIGHTMARE [None]
  - DEPRESSION [None]
  - SUICIDE ATTEMPT [None]
  - INTENTIONAL OVERDOSE [None]
